FAERS Safety Report 26186671 (Version 1)
Quarter: 2025Q4

REPORT INFORMATION
  Report Type: Spontaneous
  Country: US (occurrence: None)
  Receive Date: 20251222
  Receipt Date: 20251222
  Transmission Date: 20260118
  Serious: No
  Sender: INCYTE
  Company Number: US-INCYTE CORPORATION-2025IN013885

PATIENT
  Age: 48 Year

DRUGS (4)
  1. JAKAFI [Suspect]
     Active Substance: RUXOLITINIB
     Indication: Myeloproliferative neoplasm
     Dosage: 5 MILLIGRAM, QD
     Route: 061
  2. NIKTIMVO [Concomitant]
     Active Substance: AXATILIMAB-CSFR
     Indication: Product used for unknown indication
     Dosage: UNK
     Route: 065
  3. TACROLIMUS [Concomitant]
     Active Substance: TACROLIMUS
     Indication: Product used for unknown indication
     Dosage: UNK
     Route: 065
  4. DOPTELET [Concomitant]
     Active Substance: AVATROMBOPAG MALEATE
     Indication: Thrombocytopenic purpura
     Dosage: TAKE 2 TABLETS BY MOUTH 1 TIME A DAY ON MONDAY, WEDNESDAY, AND FRIDAY, TAKE 1 TABLET 1 TIME A DAY ON TUESDAY, THURSDAY, SATURDAY, AND SUNDAY
     Route: 065

REACTIONS (2)
  - Illness [Unknown]
  - Off label use [Unknown]
